FAERS Safety Report 4277658-3 (Version None)
Quarter: 2004Q1

REPORT INFORMATION
  Report Type: 
  Country: None (occurrence: None)
  Receive Date: 20040121
  Receipt Date: 20040105
  Transmission Date: 20041129
  Serious: Yes (Death, Hospitalization, Disabling)
  Sender: FDA-Public Use
  Company Number: REM_00047_2003

PATIENT
  Age: 28 Year
  Sex: Female
  Weight: 74.8435 kg

DRUGS (6)
  1. REMODULIN [Suspect]
     Indication: PULMONARY HYPERTENSION
     Dosage: 32 NG/KG/MIN CONTINUOUS IV
     Route: 042
     Dates: start: 20030819
  2. LOVENOX [Concomitant]
  3. ARGATROBAN [Concomitant]
  4. PREDNISONE [Concomitant]
  5. LASIX [Concomitant]
  6. COUMADIN [Concomitant]

REACTIONS (6)
  - CATHETER SEPSIS [None]
  - HAEMATOMA [None]
  - OEDEMA PERIPHERAL [None]
  - SEPSIS [None]
  - THROMBOCYTOPENIA [None]
  - UROSEPSIS [None]
